FAERS Safety Report 7909817-X (Version None)
Quarter: 2011Q4

REPORT INFORMATION
  Report Type: 
  Country: None (occurrence: None)
  Receive Date: 20111111
  Receipt Date: 20111102
  Transmission Date: 20120403
  Serious: Yes (Other)
  Sender: FDA-Public Use
  Company Number: JP-MERCK-1110USA03592

PATIENT
  Age: 94 Year
  Sex: Male

DRUGS (8)
  1. FUNGUARD [Suspect]
     Route: 042
     Dates: start: 20110905, end: 20110911
  2. VANCOMYCIN [Suspect]
     Route: 042
     Dates: start: 20110902, end: 20110908
  3. PEPCID [Suspect]
     Route: 065
     Dates: start: 20110830, end: 20110911
  4. CLINDAMYCIN [Concomitant]
     Route: 065
     Dates: start: 20110907, end: 20110911
  5. LASIX [Concomitant]
     Route: 065
     Dates: start: 20110905, end: 20110905
  6. PASIL [Concomitant]
     Route: 065
     Dates: start: 20110907, end: 20110911
  7. ZOSYN [Concomitant]
     Route: 065
     Dates: start: 20110905, end: 20110906
  8. FULCALIQ [Concomitant]
     Route: 065
     Dates: end: 20110911

REACTIONS (1)
  - PLATELET COUNT DECREASED [None]
